FAERS Safety Report 25364254 (Version 1)
Quarter: 2025Q2

REPORT INFORMATION
  Report Type: Spontaneous
  Country: US (occurrence: None)
  Receive Date: 20250523
  Receipt Date: 20250523
  Transmission Date: 20250717
  Serious: Yes (Hospitalization)
  Sender: FDA-CTU
  Company Number: None

PATIENT
  Sex: Female

DRUGS (1)
  1. DIMETHYL FUMARATE [Suspect]
     Active Substance: DIMETHYL FUMARATE
     Indication: Multiple sclerosis
     Dosage: 240 MG DAILY ORAL
     Route: 048
     Dates: start: 20201030

REACTIONS (4)
  - Paraesthesia [None]
  - Hypoaesthesia [None]
  - Yellow skin [None]
  - Ocular icterus [None]
